FAERS Safety Report 6397314-5 (Version None)
Quarter: 2009Q4

REPORT INFORMATION
  Report Type: 
  Country: None (occurrence: None)
  Receive Date: 20091012
  Receipt Date: 20090930
  Transmission Date: 20100525
  Serious: Yes (Hospitalization)
  Sender: FDA-Public Use
  Company Number: JP-SANOFI-SYNTHELABO-A01200910338

PATIENT
  Age: 62 Year
  Sex: Female

DRUGS (10)
  1. FENTANYL [Suspect]
     Indication: DRUG USE FOR UNKNOWN INDICATION
     Route: 062
  2. ZOPICLONE [Suspect]
     Indication: ANXIETY
     Route: 065
  3. ZOPICLONE [Suspect]
     Route: 065
  4. ETIZOLAM [Suspect]
     Indication: ANXIETY
     Route: 048
  5. ETIZOLAM [Suspect]
     Route: 048
  6. MYSLEE [Suspect]
     Indication: DRUG USE FOR UNKNOWN INDICATION
     Route: 048
  7. TRAZODONE [Concomitant]
     Indication: DRUG USE FOR UNKNOWN INDICATION
     Dosage: 25 MG
     Route: 065
  8. TRAZODONE [Concomitant]
     Dosage: 50 MG
     Route: 065
  9. TRAZODONE [Concomitant]
     Dosage: UNK
     Route: 065
  10. QUAZEPAM [Suspect]
     Indication: DRUG USE FOR UNKNOWN INDICATION
     Route: 065

REACTIONS (1)
  - DELIRIUM [None]
